FAERS Safety Report 4917555-0 (Version None)
Quarter: 2006Q1

REPORT INFORMATION
  Report Type: 
  Country: None (occurrence: None)
  Receive Date: 20060216
  Receipt Date: 20060216
  Transmission Date: 20060701
  Serious: Yes (Life-Threatening, Hospitalization, Disabling)
  Sender: FDA-Public Use
  Company Number: None

PATIENT
  Age: 84 Year
  Sex: Female
  Weight: 51.2565 kg

DRUGS (8)
  1. CIPROFLOXACIN [Suspect]
     Indication: BACTERIA BLOOD IDENTIFIED
     Dosage: ORALLY 047
     Dates: start: 20050628
  2. CIPROFLOXACIN [Suspect]
     Indication: BACTERIAL INFECTION
     Dosage: ORALLY 047
     Dates: start: 20050628
  3. CIPROFLOXACIN [Suspect]
     Indication: GASTRIC DISORDER
     Dosage: ORALLY 047
     Dates: start: 20050628
  4. NAPROXYEN [Concomitant]
  5. LEXAPRO [Concomitant]
  6. EXCEDRIN [Concomitant]
  7. TYLENOL XSTR [Concomitant]
  8. LORAZEPAM [Concomitant]

REACTIONS (13)
  - ABDOMINAL PAIN UPPER [None]
  - DIARRHOEA [None]
  - FEELING ABNORMAL [None]
  - GAIT DISTURBANCE [None]
  - GENERAL PHYSICAL HEALTH DETERIORATION [None]
  - MUSCLE SPASMS [None]
  - MYALGIA [None]
  - OEDEMA PERIPHERAL [None]
  - PAIN [None]
  - PAIN IN EXTREMITY [None]
  - PHARMACEUTICAL PRODUCT COMPLAINT [None]
  - TENDON DISORDER [None]
  - WALKING AID USER [None]
